FAERS Safety Report 16927974 (Version 16)
Quarter: 2025Q1

REPORT INFORMATION
  Report Type: Report from Study
  Country: US (occurrence: US)
  Receive Date: 20191017
  Receipt Date: 20250122
  Transmission Date: 20250408
  Serious: Yes (Hospitalization, Other)
  Sender: TAKEDA
  Company Number: US-SHIRE-US201934583

PATIENT
  Age: 46 Year
  Sex: Female
  Weight: 61 kg

DRUGS (27)
  1. HUMAN IMMUNOGLOBULIN G [Suspect]
     Active Substance: HUMAN IMMUNOGLOBULIN G
     Indication: Immunodeficiency common variable
     Dosage: 20 GRAM, MONTHLY
     Dates: start: 20150629
  2. HUMAN IMMUNOGLOBULIN G [Suspect]
     Active Substance: HUMAN IMMUNOGLOBULIN G
     Dosage: 20 GRAM, MONTHLY
     Dates: start: 20150706
  3. HUMAN IMMUNOGLOBULIN G [Suspect]
     Active Substance: HUMAN IMMUNOGLOBULIN G
     Dosage: 35 GRAM, MONTHLY
  4. CELLCEPT [Suspect]
     Active Substance: MYCOPHENOLATE MOFETIL
     Indication: Product used for unknown indication
  5. DIPHENHYDRAMINE HYDROCHLORIDE [Concomitant]
     Active Substance: DIPHENHYDRAMINE HYDROCHLORIDE
  6. PFIZER-BIONTECH COVID-19 VACCINE [Concomitant]
     Active Substance: TOZINAMERAN
  7. EPINEPHRINE [Concomitant]
     Active Substance: EPINEPHRINE
  8. SODIUM CHLORIDE [Concomitant]
     Active Substance: SODIUM CHLORIDE
  9. JUNEL [Concomitant]
     Active Substance: ETHINYL ESTRADIOL\NORETHINDRONE ACETATE
  10. ALLEGRA ALLERGY [Concomitant]
     Active Substance: FEXOFENADINE HYDROCHLORIDE
  11. FLUTICASONE PROPIONATE [Concomitant]
     Active Substance: FLUTICASONE PROPIONATE
  12. ACETAMINOPHEN [Concomitant]
     Active Substance: ACETAMINOPHEN
  13. METHYLPREDNISOLONE [Concomitant]
     Active Substance: METHYLPREDNISOLONE
  14. SOLU-CORTEF [Concomitant]
     Active Substance: HYDROCORTISONE SODIUM SUCCINATE
  15. OMEPRAZOLE [Concomitant]
     Active Substance: OMEPRAZOLE
  16. LISINOPRIL [Concomitant]
     Active Substance: LISINOPRIL
  17. COMPAZINE [Concomitant]
     Active Substance: PROCHLORPERAZINE MALEATE
  18. FAMOTIDINE [Concomitant]
     Active Substance: FAMOTIDINE
  19. FLONASE [Concomitant]
     Active Substance: FLUTICASONE PROPIONATE
  20. CLARITIN-D NOS [Concomitant]
     Active Substance: LORATADINE\PSEUDOEPHEDRINE SULFATE
  21. LIDOCAINE [Concomitant]
     Active Substance: LIDOCAINE
  22. SODIUM CHLORIDE [Concomitant]
     Active Substance: SODIUM CHLORIDE
  23. HEPARIN [Concomitant]
     Active Substance: HEPARIN SODIUM
  24. METHOCARBAMOL [Concomitant]
     Active Substance: METHOCARBAMOL
  25. ZYRTEC [Concomitant]
     Active Substance: CETIRIZINE HYDROCHLORIDE
  26. PREGABALIN [Concomitant]
     Active Substance: PREGABALIN
  27. MYCOPHENOLATE MOFETIL [Concomitant]
     Active Substance: MYCOPHENOLATE MOFETIL

REACTIONS (18)
  - Pneumonia [Unknown]
  - Urinary tract infection [Unknown]
  - Platelet count decreased [Unknown]
  - Cellulitis [Unknown]
  - Ear infection [Unknown]
  - Respiratory tract infection [Recovered/Resolved]
  - Dehydration [Unknown]
  - Norovirus infection [Recovered/Resolved]
  - Sinusitis [Unknown]
  - Upper respiratory tract infection [Recovered/Resolved]
  - Infusion site swelling [Unknown]
  - Cough [Unknown]
  - Diarrhoea [Recovering/Resolving]
  - COVID-19 [Unknown]
  - Nasal congestion [Unknown]
  - Contusion [Unknown]
  - Pain in extremity [Unknown]
  - Rash pruritic [Unknown]

NARRATIVE: CASE EVENT DATE: 20201030
